FAERS Safety Report 12468893 (Version 1)
Quarter: 2016Q2

REPORT INFORMATION
  Report Type: Spontaneous
  Country: US (occurrence: US)
  Receive Date: 20160615
  Receipt Date: 20160615
  Transmission Date: 20160815
  Serious: No
  Sender: FDA-Public Use
  Company Number: US-BEH-2016070231

PATIENT
  Sex: Male
  Weight: 95.24 kg

DRUGS (21)
  1. EPIPEN [Concomitant]
     Active Substance: EPINEPHRINE
  2. METOPROLOL. [Concomitant]
     Active Substance: METOPROLOL
  3. ZEMAIRA [Suspect]
     Active Substance: .ALPHA.1-PROTEINASE INHIBITOR HUMAN
     Dosage: 60 MG/KG, QW (972 MG/VL)
     Route: 058
  4. BACTRIM [Concomitant]
     Active Substance: SULFAMETHOXAZOLE\TRIMETHOPRIM
  5. DIPHENHYDRAMINE. [Concomitant]
     Active Substance: DIPHENHYDRAMINE
  6. HEPARIN [Concomitant]
     Active Substance: HEPARIN SODIUM
  7. BUPROPION. [Concomitant]
     Active Substance: BUPROPION
  8. OMEPRAZOLE. [Concomitant]
     Active Substance: OMEPRAZOLE
  9. HUMULIN NOS [Concomitant]
     Active Substance: INSULIN HUMAN
  10. PREDNISONE. [Concomitant]
     Active Substance: PREDNISONE
  11. NOXAFIL [Concomitant]
     Active Substance: POSACONAZOLE
  12. TACROLIMUS. [Concomitant]
     Active Substance: TACROLIMUS
  13. AZITHROMYCIN ANHYDROUS. [Concomitant]
     Active Substance: AZITHROMYCIN ANHYDROUS
  14. MYFORTIC [Concomitant]
     Active Substance: MYCOPHENOLATE SODIUM
  15. LYRICA [Concomitant]
     Active Substance: PREGABALIN
  16. MULTIVITAMINS [Concomitant]
     Active Substance: VITAMINS
  17. ACETAMINOPHEN. [Concomitant]
     Active Substance: ACETAMINOPHEN
  18. ZEMAIRA [Suspect]
     Active Substance: .ALPHA.1-PROTEINASE INHIBITOR HUMAN
     Indication: ALPHA-1 ANTI-TRYPSIN DEFICIENCY
     Dosage: UNK
     Route: 042
     Dates: start: 20091002
  19. SODIUM CHLORIDE. [Concomitant]
     Active Substance: SODIUM CHLORIDE
  20. LMX                                /00033401/ [Concomitant]
  21. VALGANCICLOVIR. [Concomitant]
     Active Substance: VALGANCICLOVIR

REACTIONS (2)
  - Pruritus [Unknown]
  - Erythema [Unknown]
